FAERS Safety Report 12067817 (Version 1)
Quarter: 2016Q1

REPORT INFORMATION
  Report Type: Spontaneous
  Country: US (occurrence: US)
  Receive Date: 20160211
  Receipt Date: 20160211
  Transmission Date: 20160526
  Serious: No
  Sender: FDA-Public Use
  Company Number: US-SMITH AND NEPHEW, INC-2015SMT00080

PATIENT
  Age: 79 Year
  Sex: Male

DRUGS (8)
  1. DETROL [Concomitant]
     Active Substance: TOLTERODINE TARTRATE
  2. ALLOPURINOL. [Concomitant]
     Active Substance: ALLOPURINOL
  3. ATENOLOL. [Concomitant]
     Active Substance: ATENOLOL
  4. BUMETANIDE. [Concomitant]
     Active Substance: BUMETANIDE
  5. DOXAZOSIN [Concomitant]
     Active Substance: DOXAZOSIN\DOXAZOSIN MESYLATE
  6. ATORVASTATIN [Concomitant]
     Active Substance: ATORVASTATIN
  7. REGRANEX [Suspect]
     Active Substance: BECAPLERMIN
     Indication: SKIN ULCER
     Dosage: UNK
     Dates: start: 20150420, end: 20150506
  8. PRADAXA [Concomitant]
     Active Substance: DABIGATRAN ETEXILATE MESYLATE

REACTIONS (4)
  - Poor quality sleep [Unknown]
  - Off label use [Recovered/Resolved]
  - Drug intolerance [Recovered/Resolved]
  - Burning sensation [Recovered/Resolved]

NARRATIVE: CASE EVENT DATE: 20150420
